FAERS Safety Report 17511359 (Version 3)
Quarter: 2020Q2

REPORT INFORMATION
  Report Type: Spontaneous
  Country: US (occurrence: US)
  Receive Date: 20200306
  Receipt Date: 20200406
  Transmission Date: 20200713
  Serious: Yes (Hospitalization, Other)
  Sender: FDA-Public Use
  Company Number: US-UNITED THERAPEUTICS-UNT-2020-003676

PATIENT
  Age: 42 Year
  Sex: Female
  Weight: 56.69 kg

DRUGS (8)
  1. TYVASO [Suspect]
     Active Substance: TREPROSTINIL
     Dosage: 18-54 ?G, QID
  2. ELIQUIS [Concomitant]
     Active Substance: APIXABAN
     Indication: PRODUCT USED FOR UNKNOWN INDICATION
     Dosage: UNK
     Route: 065
  3. TADALAFIL. [Concomitant]
     Active Substance: TADALAFIL
     Indication: PRODUCT USED FOR UNKNOWN INDICATION
     Dosage: UNK
     Route: 065
  4. OPSUMIT [Concomitant]
     Active Substance: MACITENTAN
     Indication: PRODUCT USED FOR UNKNOWN INDICATION
     Dosage: UNK
     Route: 065
  5. TYVASO [Suspect]
     Active Substance: TREPROSTINIL
     Dosage: UNK
  6. TYVASO [Suspect]
     Active Substance: TREPROSTINIL
     Indication: PULMONARY ARTERIAL HYPERTENSION
     Dosage: 60-120 ?G, QID
  7. REVATIO [Concomitant]
     Active Substance: SILDENAFIL CITRATE
     Indication: PRODUCT USED FOR UNKNOWN INDICATION
     Dosage: UNK
     Route: 065
  8. TYVASO [Suspect]
     Active Substance: TREPROSTINIL
     Dosage: UNK
     Dates: start: 20171124

REACTIONS (20)
  - Hot flush [Unknown]
  - Cough [Unknown]
  - Chest discomfort [Unknown]
  - Asthenia [Unknown]
  - Cardiac failure congestive [Unknown]
  - Decreased appetite [Unknown]
  - Loss of personal independence in daily activities [Unknown]
  - Dyspnoea [Unknown]
  - Respiratory disorder [Unknown]
  - Back pain [Unknown]
  - Insomnia [Unknown]
  - Pulmonary embolism [Not Recovered/Not Resolved]
  - Off label use [Unknown]
  - Malaise [Unknown]
  - Dizziness [Unknown]
  - Hyperhidrosis [Unknown]
  - Abdominal pain upper [Unknown]
  - Bronchitis [Unknown]
  - Fatigue [Unknown]
  - Chest pain [Unknown]

NARRATIVE: CASE EVENT DATE: 20200228
